FAERS Safety Report 23779239 (Version 1)
Quarter: 2024Q2

REPORT INFORMATION
  Report Type: Spontaneous
  Country: US (occurrence: US)
  Receive Date: 20240424
  Receipt Date: 20240424
  Transmission Date: 20240716
  Serious: Yes (Death, Other)
  Sender: FDA-Public Use
  Company Number: US-PURDUE PHARMA-USA-2024-0309190

PATIENT
  Sex: Male

DRUGS (1)
  1. OXYCODONE HYDROCHLORIDE [Suspect]
     Active Substance: OXYCODONE HYDROCHLORIDE
     Indication: Product used for unknown indication
     Dosage: UNK
     Route: 065
     Dates: start: 2010

REACTIONS (4)
  - Hepatocellular carcinoma [Fatal]
  - Hepatic cirrhosis [Fatal]
  - Gastrointestinal haemorrhage [Fatal]
  - Hepatic failure [Unknown]

NARRATIVE: CASE EVENT DATE: 20201014
